FAERS Safety Report 9683468 (Version 2)
Quarter: 2014Q1

REPORT INFORMATION
  Report Type: Spontaneous
  Country: GB (occurrence: GB)
  Receive Date: 20131112
  Receipt Date: 20140210
  Transmission Date: 20141002
  Serious: Yes (Hospitalization)
  Sender: FDA-Public Use
  Company Number: GB-ABBVIE-13P-167-1167953-00

PATIENT
  Age: 33 Year
  Sex: Male

DRUGS (2)
  1. CLARITH [Suspect]
     Indication: LOWER RESPIRATORY TRACT INFECTION
     Route: 048
     Dates: start: 20131016, end: 20131017
  2. AMOXICILLIN [Concomitant]
     Indication: PRODUCT USED FOR UNKNOWN INDICATION

REACTIONS (4)
  - Communication disorder [Unknown]
  - Decreased eye contact [Unknown]
  - Abnormal behaviour [Unknown]
  - Malaise [Unknown]
